FAERS Safety Report 9520766 (Version 1)
Quarter: 2013Q1

REPORT INFORMATION
  Report Type: Spontaneous
  Country: US (occurrence: None)
  Receive Date: 20130305
  Receipt Date: 20130305
  Transmission Date: 20140127
  Serious: Yes (Other)
  Sender: FDA-Public Use
  Company Number: 163-21880-12073295

PATIENT
  Age: 73 Year
  Sex: Female

DRUGS (4)
  1. REVLIMID (LENALIDOMIDE) (CAPSULES) [Suspect]
     Indication: PLASMA CELL MYELOMA
     Dosage: 25 MG,  21 IN 21 D,  PO
     Route: 048
     Dates: start: 200811
  2. BENADRYL ALLERGY (BENADRYL ALLERGY) [Concomitant]
  3. ONDANSETRON HCL (ONDANSETRON HYDROCHLORIDE) [Concomitant]
  4. DRAMAMINE (DIMENHYDRINATE) [Concomitant]

REACTIONS (1)
  - Pain in extremity [None]
